FAERS Safety Report 20670784 (Version 2)
Quarter: 2022Q2

REPORT INFORMATION
  Report Type: Report from Study
  Country: ES (occurrence: None)
  Receive Date: 20220404
  Receipt Date: 20220407
  Transmission Date: 20220721
  Serious: Yes (Death)
  Sender: FDA-Public Use
  Company Number: ES-Eisai Medical Research-EC-2022-112217

PATIENT
  Age: 53 Year
  Sex: Male
  Weight: 62.2 kg

DRUGS (14)
  1. LENVATINIB [Suspect]
     Active Substance: LENVATINIB
     Indication: Colorectal cancer
     Route: 048
     Dates: start: 20211116, end: 20220119
  2. PEMBROLIZUMAB [Suspect]
     Active Substance: PEMBROLIZUMAB
     Indication: Colorectal cancer
     Route: 041
     Dates: start: 20211116, end: 20211116
  3. PEMBROLIZUMAB [Suspect]
     Active Substance: PEMBROLIZUMAB
     Route: 041
     Dates: start: 20211230, end: 20211230
  4. FAVEZELIMAB [Suspect]
     Active Substance: FAVEZELIMAB
     Indication: Colorectal cancer
     Route: 042
     Dates: start: 20211116, end: 20211116
  5. FAVEZELIMAB [Suspect]
     Active Substance: FAVEZELIMAB
     Route: 042
     Dates: start: 20211230, end: 20211230
  6. DIAZEPAM [Concomitant]
     Active Substance: DIAZEPAM
     Dates: start: 202109
  7. OMEPRAZOLE [Concomitant]
     Active Substance: OMEPRAZOLE
     Dates: start: 202109
  8. TRAMADOL HYDROCHLORIDE [Concomitant]
     Active Substance: TRAMADOL HYDROCHLORIDE
     Dates: start: 202109
  9. IRON [Concomitant]
     Active Substance: IRON
     Dates: start: 202109
  10. DEXAMETHASONE [Concomitant]
     Active Substance: DEXAMETHASONE
     Dates: start: 20211207
  11. POLYETHYLENE GLYCOL COMPOUND [Concomitant]
     Dates: start: 20211216
  12. BEMIPARIN SODIUM [Concomitant]
     Active Substance: BEMIPARIN SODIUM
     Route: 058
     Dates: start: 20211216
  13. MORPHINE SULFATE [Concomitant]
     Active Substance: MORPHINE SULFATE
     Dates: start: 20211216
  14. ACETAMINOPHEN [Concomitant]
     Active Substance: ACETAMINOPHEN
     Dates: start: 20211216

REACTIONS (1)
  - Malignant neoplasm progression [Fatal]

NARRATIVE: CASE EVENT DATE: 20220314
